FAERS Safety Report 15515254 (Version 1)
Quarter: 2018Q4

REPORT INFORMATION
  Report Type: Spontaneous
  Country: US (occurrence: US)
  Receive Date: 20181017
  Receipt Date: 20181017
  Transmission Date: 20190205
  Serious: No
  Sender: FDA-Public Use
  Company Number: US-SAREPTA THERAPEUTICS, INC-SRP-000110-2018

PATIENT
  Age: 10 Year
  Sex: Male
  Weight: 25.4 kg

DRUGS (1)
  1. EXONDYS 51 [Suspect]
     Active Substance: ETEPLIRSEN
     Indication: DUCHENNE MUSCULAR DYSTROPHY
     Dosage: 800 MG, WEEKLY
     Route: 042
     Dates: start: 20180402

REACTIONS (3)
  - Hypoaesthesia [Recovered/Resolved]
  - Thirst [Recovered/Resolved]
  - Migraine [Recovered/Resolved]

NARRATIVE: CASE EVENT DATE: 20180620
